FAERS Safety Report 9169080 (Version 3)
Quarter: 2013Q2

REPORT INFORMATION
  Report Type: Spontaneous
  Country: FR (occurrence: FR)
  Receive Date: 20130318
  Receipt Date: 20130418
  Transmission Date: 20140414
  Serious: Yes (Hospitalization)
  Sender: FDA-Public Use
  Company Number: FR-ROCHE-1201074

PATIENT
  Age: 67 Year
  Sex: Male

DRUGS (3)
  1. MABTHERA [Suspect]
     Indication: B-CELL LYMPHOMA
     Route: 065
     Dates: start: 20130206, end: 20130213
  2. REVLIMID [Suspect]
     Indication: B-CELL LYMPHOMA
     Route: 048
     Dates: start: 20130207, end: 20130208
  3. AUGMENTIN [Suspect]
     Indication: PHARYNGITIS
     Route: 048
     Dates: start: 20130216, end: 20130217

REACTIONS (1)
  - Vascular purpura [Recovered/Resolved]
